FAERS Safety Report 4309343-3 (Version None)
Quarter: 2004Q1

REPORT INFORMATION
  Report Type: 
  Country: None (occurrence: None)
  Receive Date: 20040302
  Receipt Date: 20040220
  Transmission Date: 20041129
  Serious: Yes (Hospitalization)
  Sender: FDA-Public Use
  Company Number: WAES 0402FRA00059

PATIENT
  Age: 92 Year
  Sex: Female

DRUGS (13)
  1. ACETAMINOPHEN [Concomitant]
     Route: 048
  2. CIPROFLOXACIN HYDROCHLORIDE [Concomitant]
     Route: 048
  3. COLCHICINE [Suspect]
     Indication: GOUT
     Route: 048
     Dates: end: 20031102
  4. FLUINDIONE [Concomitant]
     Route: 048
  5. FUROSEMIDE [Concomitant]
     Route: 048
  6. INOSINE PHOSPHATE DISODIUM [Concomitant]
     Route: 047
  7. LEVOTHYROXINE SODIUM [Concomitant]
     Indication: HYPOTHYROIDISM
     Route: 048
  8. LORAZEPAM [Suspect]
     Route: 048
     Dates: end: 20031102
  9. LORAZEPAM [Suspect]
     Route: 048
     Dates: start: 20031103, end: 20031119
  10. METFORMIN HYDROCHLORIDE [Concomitant]
     Indication: DIABETES MELLITUS
     Route: 048
  11. TIMOPTIC [Suspect]
     Indication: GLAUCOMA
     Route: 047
     Dates: end: 20031102
  12. ZOLPIDEM TARTRATE [Suspect]
     Route: 048
     Dates: end: 20031119
  13. ZOLPIDEM TARTRATE [Suspect]
     Route: 048
     Dates: start: 20031120

REACTIONS (2)
  - ABNORMAL BEHAVIOUR [None]
  - APATHY [None]
